FAERS Safety Report 9557856 (Version 1)
Quarter: 2013Q3

REPORT INFORMATION
  Report Type: Spontaneous
  Country: FR (occurrence: FR)
  Receive Date: 20130926
  Receipt Date: 20130926
  Transmission Date: 20140515
  Serious: Yes (Death)
  Sender: FDA-Public Use
  Company Number: FR-PFIZER INC-2013272765

PATIENT
  Age: 23 Year
  Sex: Male

DRUGS (1)
  1. EFFEXOR LP [Suspect]
     Dosage: UNK

REACTIONS (3)
  - Completed suicide [Fatal]
  - Anxiety [Unknown]
  - Nightmare [Unknown]
